FAERS Safety Report 9296724 (Version 3)
Quarter: 2013Q3

REPORT INFORMATION
  Report Type: Spontaneous
  Country: US (occurrence: None)
  Receive Date: 20130515
  Receipt Date: 20130815
  Transmission Date: 20140515
  Serious: Yes (Other)
  Sender: FDA-Public Use
  Company Number: ADR-2013-00822

PATIENT
  Age: 67 Year
  Sex: Female

DRUGS (3)
  1. BACLOFEN [Suspect]
     Indication: PAIN
     Route: 037
  2. MORPHINE [Concomitant]
  3. HYDROMORPHONE [Concomitant]

REACTIONS (2)
  - Aortic aneurysm [None]
  - Device battery issue [None]
